FAERS Safety Report 18989619 (Version 1)
Quarter: 2021Q1

REPORT INFORMATION
  Report Type: Report from Study
  Country: US (occurrence: US)
  Receive Date: 20210309
  Receipt Date: 20210309
  Transmission Date: 20210420
  Serious: Yes (Disabling)
  Sender: FDA-Public Use
  Company Number: US-GILEAD-2021-0520254

PATIENT
  Age: 41 Year
  Sex: Female

DRUGS (1)
  1. TENOFOVIR ALAFENAMIDE [Suspect]
     Active Substance: TENOFOVIR ALAFENAMIDE
     Indication: HEPATITIS B
     Dosage: 25 MG, QD
     Route: 048

REACTIONS (1)
  - Gait inability [Not Recovered/Not Resolved]
